FAERS Safety Report 25352696 (Version 1)
Quarter: 2025Q2

REPORT INFORMATION
  Report Type: Spontaneous
  Country: US (occurrence: US)
  Receive Date: 20250523
  Receipt Date: 20250523
  Transmission Date: 20250717
  Serious: No
  Sender: BAYER HEALTHCARE LLC
  Company Number: US-BAYER-2025A064947

PATIENT
  Sex: Female

DRUGS (1)
  1. CLARITIN [Suspect]
     Active Substance: LORATADINE

REACTIONS (6)
  - Pruritus [None]
  - Scratch [None]
  - Haemorrhage [None]
  - Nasopharyngitis [None]
  - Cough [None]
  - Drug ineffective [None]
